FAERS Safety Report 18886998 (Version 2)
Quarter: 2021Q1

REPORT INFORMATION
  Report Type: Spontaneous
  Country: US (occurrence: US)
  Receive Date: 20210212
  Receipt Date: 20210216
  Transmission Date: 20210420
  Serious: Yes (Other)
  Sender: FDA-Public Use
  Company Number: US-SA-2021SA042878

PATIENT
  Age: 67 Year
  Sex: Female

DRUGS (1)
  1. AUBAGIO [Suspect]
     Active Substance: TERIFLUNOMIDE
     Indication: MULTIPLE SCLEROSIS
     Dosage: 14 MG, QD
     Route: 048
     Dates: start: 20161003, end: 20210203

REACTIONS (1)
  - Breast cancer [Not Recovered/Not Resolved]

NARRATIVE: CASE EVENT DATE: 20210203
